FAERS Safety Report 25113186 (Version 4)
Quarter: 2025Q4

REPORT INFORMATION
  Report Type: Spontaneous
  Country: US (occurrence: None)
  Receive Date: 20250324
  Receipt Date: 20251217
  Transmission Date: 20260117
  Serious: No
  Sender: UCB
  Company Number: US-UCBSA-2025002961

PATIENT
  Age: 46 Year
  Weight: 130.1 kg

DRUGS (3)
  1. BIMZELX [Suspect]
     Active Substance: BIMEKIZUMAB-BKZX
     Indication: Psoriasis
     Dosage: 320 MILLIGRAM, EV 4 WEEKS
  2. BIMZELX [Suspect]
     Active Substance: BIMEKIZUMAB-BKZX
     Indication: Illness
     Dosage: 320 MILLIGRAM, EV 4 WEEKS
  3. MONJUVI [Concomitant]
     Active Substance: TAFASITAMAB-CXIX
     Indication: Product used for unknown indication
     Dosage: 200 MILLIGRAM VIAL

REACTIONS (3)
  - Psoriasis [Unknown]
  - Candida infection [Recovered/Resolved]
  - Product dose omission issue [Unknown]
